FAERS Safety Report 19733613 (Version 2)
Quarter: 2021Q4

REPORT INFORMATION
  Report Type: Spontaneous
  Country: BR (occurrence: BR)
  Receive Date: 20210823
  Receipt Date: 20211110
  Transmission Date: 20220303
  Serious: Yes (Hospitalization, Other)
  Sender: FDA-Public Use
  Company Number: BR-PFIZER INC-202101041514

PATIENT
  Age: 47 Year
  Sex: Female

DRUGS (4)
  1. ENBREL [Suspect]
     Active Substance: ETANERCEPT
     Indication: Rheumatoid arthritis
     Dosage: 50 MILLIGRAM, QWK
     Route: 065
     Dates: start: 2011
  2. LEVOTHYROXINE [Concomitant]
     Active Substance: LEVOTHYROXINE
     Dosage: UNK
  3. METHOTREXATE [Concomitant]
     Active Substance: METHOTREXATE
     Dosage: UNK
  4. FOLIC ACID [Concomitant]
     Active Substance: FOLIC ACID
     Dosage: UNK

REACTIONS (2)
  - Decreased immune responsiveness [Not Recovered/Not Resolved]
  - Meningioma [Recovered/Resolved]
